FAERS Safety Report 5064403-7 (Version None)
Quarter: 2006Q3

REPORT INFORMATION
  Report Type: 
  Country: None (occurrence: None)
  Receive Date: 20060728
  Receipt Date: 20060630
  Transmission Date: 20061208
  Serious: Yes (Death)
  Sender: FDA-Public Use
  Company Number: GB-BRISTOL-MYERS SQUIBB COMPANY-13432430

PATIENT
  Age: 67 Year
  Sex: Male

DRUGS (10)
  1. MITOMYCIN [Suspect]
     Indication: BLADDER CANCER
     Route: 043
     Dates: start: 20040601, end: 20040701
  2. TICE BCG [Suspect]
     Indication: BLADDER CANCER
     Route: 043
  3. WARFARIN SODIUM [Concomitant]
  4. NITRAZEPAM [Concomitant]
  5. FERROUS SULFATE TAB [Concomitant]
  6. PRAVASTATIN SODIUM [Concomitant]
  7. DILTIAZEM HCL [Concomitant]
  8. LANSOPRAZOLE [Concomitant]
  9. NICORANDIL [Concomitant]
  10. GTN-S [Concomitant]

REACTIONS (1)
  - BLADDER PERFORATION [None]
